FAERS Safety Report 13395067 (Version 1)
Quarter: 2017Q1

REPORT INFORMATION
  Report Type: Spontaneous
  Country: US (occurrence: US)
  Receive Date: 20170331
  Receipt Date: 20170331
  Transmission Date: 20170429
  Serious: No
  Sender: FDA-Public Use
  Company Number: None

PATIENT
  Age: 63 Year
  Sex: Male
  Weight: 87.17 kg

DRUGS (1)
  1. HARVONI [Suspect]
     Active Substance: LEDIPASVIR\SOFOSBUVIR
     Indication: HEPATITIS C
     Dosage: 90MG/400MG DAILY PO
     Route: 048
     Dates: start: 20170118

REACTIONS (4)
  - Fatigue [None]
  - Dizziness [None]
  - Dysphagia [None]
  - Lip and/or oral cavity cancer [None]
